FAERS Safety Report 6133398-7 (Version None)
Quarter: 2009Q1

REPORT INFORMATION
  Report Type: 
  Country: None (occurrence: None)
  Receive Date: 20090326
  Receipt Date: 20090318
  Transmission Date: 20090719
  Serious: Yes (Other)
  Sender: FDA-Public Use
  Company Number: PHEH2009US02881

PATIENT
  Age: 78 Year
  Sex: Female

DRUGS (1)
  1. STARLIX [Suspect]
     Dosage: 60 MG, QD

REACTIONS (1)
  - EYE HAEMORRHAGE [None]
